FAERS Safety Report 11879192 (Version 5)
Quarter: 2016Q1

REPORT INFORMATION
  Report Type: Spontaneous
  Country: US (occurrence: US)
  Receive Date: 20151230
  Receipt Date: 20160225
  Transmission Date: 20160526
  Serious: Yes (Other)
  Sender: FDA-Public Use
  Company Number: US-PFIZER INC-2015453675

PATIENT
  Age: 59 Year
  Sex: Female
  Weight: 87 kg

DRUGS (2)
  1. IBRANCE [Suspect]
     Active Substance: PALBOCICLIB
     Dosage: 125 MG, CYCLIC (1 TAB DAILY 21 OUT OF 28 DAYS)
     Route: 048
     Dates: start: 20150212, end: 20160216
  2. IBRANCE [Suspect]
     Active Substance: PALBOCICLIB
     Indication: BREAST CANCER STAGE IV
     Dosage: 125 MG, CYCLIC (DAY 1-21 Q 28 DAYS)
     Route: 048
     Dates: start: 20151202, end: 20160119

REACTIONS (7)
  - White blood cell count decreased [Unknown]
  - Fatigue [Unknown]
  - Decreased appetite [Unknown]
  - Nausea [Unknown]
  - Somnolence [Unknown]
  - Neutropenia [Unknown]
  - Asthenia [Unknown]

NARRATIVE: CASE EVENT DATE: 20151222
